FAERS Safety Report 15839983 (Version 1)
Quarter: 2019Q1

REPORT INFORMATION
  Report Type: Spontaneous
  Country: US (occurrence: US)
  Receive Date: 20190117
  Receipt Date: 20190117
  Transmission Date: 20190417
  Serious: No
  Sender: FDA-Public Use
  Company Number: US-PFIZER INC-2019019162

PATIENT
  Age: 69 Year
  Sex: Female

DRUGS (3)
  1. CYMBALTA [Concomitant]
     Active Substance: DULOXETINE HYDROCHLORIDE
     Indication: PAIN
     Dosage: 60 MG, 1X/DAY
     Route: 048
  2. LYRICA [Suspect]
     Active Substance: PREGABALIN
     Indication: MYELOPATHY
     Dosage: 100 MG, 1X/DAY
  3. LYRICA [Suspect]
     Active Substance: PREGABALIN
     Indication: FIBROMYALGIA
     Dosage: 150 MG, DAILY (50MG IN THE MORNING AND TAKE THE 100MG AT NIGHT)

REACTIONS (5)
  - Somnolence [Unknown]
  - Muscle spasms [Unknown]
  - Product use in unapproved indication [Unknown]
  - Sensitivity to weather change [Unknown]
  - Neuralgia [Unknown]
